FAERS Safety Report 11008858 (Version 2)
Quarter: 2015Q2

REPORT INFORMATION
  Report Type: Spontaneous
  Country: US (occurrence: US)
  Receive Date: 20150410
  Receipt Date: 20150430
  Transmission Date: 20150821
  Serious: Yes (Other)
  Sender: FDA-Public Use
  Company Number: US-MYLANLABS-2015M1010359

PATIENT

DRUGS (3)
  1. CATAPRES                           /00171101/ [Suspect]
     Active Substance: CLONIDINE
     Indication: HYPERTENSION
     Dosage: UNK
     Route: 062
     Dates: start: 2006
  2. CLONIDINE TRANSDERMAL SYSTEM [Suspect]
     Active Substance: CLONIDINE
     Indication: HYPERTENSION
     Dosage: 0.2 MG/DAY, CHANGED Q5 DAYS
     Route: 062
  3. CLONIDINE. [Suspect]
     Active Substance: CLONIDINE
     Indication: HYPERTENSION
     Dosage: 0.05-0.1 MG, Q8H AFTER CHANGING PATCH
     Route: 048

REACTIONS (3)
  - Blood pressure increased [Recovered/Resolved]
  - Myocardial infarction [Recovered/Resolved]
  - Palpitations [Recovered/Resolved]

NARRATIVE: CASE EVENT DATE: 2006
